FAERS Safety Report 7159210-5 (Version None)
Quarter: 2010Q4

REPORT INFORMATION
  Report Type: 
  Country: None (occurrence: None)
  Receive Date: 20101214
  Receipt Date: 20101004
  Transmission Date: 20110411
  Serious: No
  Sender: FDA-Public Use
  Company Number: US-ASTRAZENECA-2010SE38084

PATIENT
  Age: 64 Year
  Sex: Female

DRUGS (10)
  1. CRESTOR [Suspect]
     Indication: HYPERCHOLESTEROLAEMIA
     Route: 048
     Dates: start: 20100725
  2. Z-BETA [Concomitant]
  3. EVISTA [Concomitant]
  4. PREVACID [Concomitant]
  5. XANAX [Concomitant]
  6. ASPIRIN [Concomitant]
  7. CHONDROITAN [Concomitant]
  8. VIACTIV [Concomitant]
  9. FISH OIL [Concomitant]
  10. IRON [Concomitant]

REACTIONS (1)
  - OEDEMA PERIPHERAL [None]
